FAERS Safety Report 9445100 (Version 2)
Quarter: 2013Q3

REPORT INFORMATION
  Report Type: Spontaneous
  Country: AU (occurrence: AU)
  Receive Date: 20130807
  Receipt Date: 20130822
  Transmission Date: 20140515
  Serious: Yes (Death, Other)
  Sender: FDA-Public Use
  Company Number: AU-JNJFOC-20130717879

PATIENT
  Sex: 0

DRUGS (1)
  1. FENTANYL [Suspect]
     Indication: PRODUCT USED FOR UNKNOWN INDICATION
     Route: 042

REACTIONS (6)
  - Death [Fatal]
  - Overdose [Fatal]
  - Drug abuse [Unknown]
  - Wrong technique in drug usage process [Unknown]
  - Intentional drug misuse [Unknown]
  - Drug diversion [Unknown]
